FAERS Safety Report 20327331 (Version 2)
Quarter: 2022Q2

REPORT INFORMATION
  Report Type: Report from Study
  Country: US (occurrence: None)
  Receive Date: 20220112
  Receipt Date: 20220421
  Transmission Date: 20220720
  Serious: Yes (Hospitalization, Other)
  Sender: FDA-Public Use
  Company Number: US-ROCHE-2732509

PATIENT
  Age: 71 Year
  Sex: Female
  Weight: 70.2 kg

DRUGS (19)
  1. COBIMETINIB [Suspect]
     Active Substance: COBIMETINIB
     Indication: Ovarian cancer recurrent
     Dosage: DOSE LAST STUDY DRUG ADMIN PRIOR SAE: 40 MG,?ON 03/DEC/2020, DATE OF MOST RECENT DOSE OF STUDY DRUG
     Route: 048
     Dates: start: 20200313
  2. NIRAPARIB [Suspect]
     Active Substance: NIRAPARIB
     Indication: Ovarian cancer recurrent
     Dosage: DOSE LAST STUDY DRUG ADMIN PRIOR SAE: 200 MG. ON  09/JUL/2020, RECEIVED MOST RECENT DOSE OF NIRAPARI
     Route: 048
     Dates: start: 20200313
  3. ATEZOLIZUMAB [Suspect]
     Active Substance: ATEZOLIZUMAB
     Indication: Ovarian cancer recurrent
     Dosage: DATE AND DOSE LAST STUDY DRUG ADMIN PRIOR SAE AND DATE OF MOST RECENT DOSE OF STUDY DRUG PRIOR TO AE
     Route: 041
     Dates: start: 20200313
  4. EMERGEN-C [Concomitant]
     Active Substance: VITAMINS
     Route: 048
     Dates: start: 20190104
  5. LIDOCAINE VISCOUS [Concomitant]
     Active Substance: LIDOCAINE HYDROCHLORIDE
     Indication: Mucosal inflammation
     Route: 048
     Dates: start: 20200402
  6. NYSTATIN [Concomitant]
     Active Substance: NYSTATIN
     Indication: Mucosal inflammation
     Route: 048
     Dates: start: 20200402
  7. DOCUSATE SODIUM [Concomitant]
     Active Substance: DOCUSATE SODIUM
     Indication: Constipation
     Route: 048
     Dates: start: 20200424
  8. ELIQUIS [Concomitant]
     Active Substance: APIXABAN
     Indication: Pulmonary embolism
     Route: 048
     Dates: start: 20200518
  9. LOSARTAN [Concomitant]
     Active Substance: LOSARTAN
     Indication: Hypertension
     Route: 048
     Dates: start: 20200629
  10. LOSARTAN [Concomitant]
     Active Substance: LOSARTAN
     Route: 048
     Dates: start: 20200608, end: 20200628
  11. OMEPRAZOLE [Concomitant]
     Active Substance: OMEPRAZOLE
     Indication: Dyspepsia
     Route: 048
     Dates: start: 20200708, end: 20211111
  12. LEVOTHYROXINE [Concomitant]
     Active Substance: LEVOTHYROXINE
     Indication: Alopecia
     Route: 048
     Dates: start: 2009, end: 20210526
  13. METOPROLOL [Concomitant]
     Active Substance: METOPROLOL
     Indication: Ejection fraction decreased
     Route: 048
     Dates: start: 20201030, end: 20201206
  14. HYDROCHLOROTHIAZIDE [Concomitant]
     Active Substance: HYDROCHLOROTHIAZIDE
     Indication: Hypertension
     Route: 048
     Dates: start: 2009, end: 20201203
  15. HYDROCHLOROTHIAZIDE [Concomitant]
     Active Substance: HYDROCHLOROTHIAZIDE
     Route: 048
     Dates: start: 20201222
  16. TYLENOL [Concomitant]
     Active Substance: ACETAMINOPHEN
     Indication: Headache
     Route: 048
     Dates: start: 2013
  17. ASPIRIN [Concomitant]
     Active Substance: ASPIRIN
     Route: 048
     Dates: start: 20200126
  18. CARVEDILOL [Concomitant]
     Active Substance: CARVEDILOL
     Indication: Hypertension
     Route: 048
     Dates: start: 20201209, end: 20201215
  19. SHINGRIX [Concomitant]
     Active Substance: RECOMBINANT VARICELLA ZOSTER VIRUS (VZV) GLYCOPROTEIN E
     Route: 030
     Dates: start: 20201008, end: 20201008

REACTIONS (2)
  - Chest pain [Recovered/Resolved]
  - Cardiomyopathy [Recovered/Resolved]

NARRATIVE: CASE EVENT DATE: 20200710
